FAERS Safety Report 9208687 (Version 2)
Quarter: 2019Q1

REPORT INFORMATION
  Report Type: Spontaneous
  Country: DE (occurrence: DE)
  Receive Date: 20130404
  Receipt Date: 20190130
  Transmission Date: 20190418
  Serious: Yes (Hospitalization, Other)
  Sender: FDA-Public Use
  Company Number: DE-ACCORD-017051

PATIENT
  Age: 56 Year
  Sex: Female

DRUGS (3)
  1. BEVACIZUMAB. [Suspect]
     Active Substance: BEVACIZUMAB
     Indication: OVARIAN CANCER
     Dosage: SECOND-LINE CHEMOTHERAPY WITH BEVACIZUMAB 15 MG/KG ON DAY 1,
     Route: 065
  2. GEMCITABINE/GEMCITABINE HYDROCHLORIDE [Suspect]
     Active Substance: GEMCITABINE\GEMCITABINE HYDROCHLORIDE
     Indication: OVARIAN CANCER
     Dosage: SECOND-LINE CHEMOTHERAPY WITH GEMCITABINE 1,000MG/M^2 ON DAY 8, EVERY 3 WEEKS. ONE CYCLE WAS ADMINIS
  3. CARBOPLATIN. [Suspect]
     Active Substance: CARBOPLATIN
     Indication: OVARIAN CANCER
     Dosage: SECOND-LINE CHEMOTHERAPY WITH CARBOPLATIN?AREA UNDER THE CURVE OF 4
     Route: 065

REACTIONS (2)
  - Gastric perforation [Recovered/Resolved]
  - Gastropleural fistula [Recovered/Resolved]

NARRATIVE: CASE EVENT DATE: 2011
